FAERS Safety Report 11724311 (Version 3)
Quarter: 2016Q4

REPORT INFORMATION
  Report Type: Spontaneous
  Country: US (occurrence: US)
  Receive Date: 20151111
  Receipt Date: 20161220
  Transmission Date: 20170206
  Serious: Yes (Other)
  Sender: FDA-Public Use
  Company Number: US-PFIZER INC-2015380295

PATIENT
  Age: 61 Year
  Sex: Male

DRUGS (19)
  1. PHENERGAN W/ CODEINE [Concomitant]
     Active Substance: CODEINE PHOSPHATE\PROMETHAZINE HYDROCHLORIDE
     Dosage: 5 ML, EVERY 6 HOURS AS NEEDED
     Route: 048
  2. VOLTAREN [Concomitant]
     Active Substance: DICLOFENAC SODIUM
     Indication: PAIN
     Dosage: UNK (SMALL AMOUNT 2-4 G, 3-4 TIMES A DAY)
     Route: 061
  3. LEVEMIR [Concomitant]
     Active Substance: INSULIN DETEMIR
     Indication: DIABETES MELLITUS
     Dosage: 45 IU, 2X/DAY
     Route: 058
  4. MOTRIN [Concomitant]
     Active Substance: IBUPROFEN
     Dosage: 800 MG, 3X/DAY
     Route: 048
  5. VOLTAREN [Concomitant]
     Active Substance: DICLOFENAC SODIUM
     Indication: ARTHRALGIA
  6. VOLTAREN [Concomitant]
     Active Substance: DICLOFENAC SODIUM
     Indication: ARTHRALGIA
  7. FLOMAX [Concomitant]
     Active Substance: TAMSULOSIN HYDROCHLORIDE
     Dosage: 0.8 MG, 1X/DAY (TAKE 2 CAPS)
     Route: 048
  8. PERCOCET [Concomitant]
     Active Substance: ACETAMINOPHEN\OXYCODONE HYDROCHLORIDE
     Indication: PAIN
     Dosage: 1 DF, AS NEEDED (OXYCODONE HYDROCHLORIDE: 10 MG/PARACETAMOL: 325 MG) (TAKE 1 TAB EVERY 8 HOURS
     Route: 048
     Dates: start: 20161109
  9. HYDROCHLOROTHIAZIDE W/LOSARTAN [Concomitant]
     Active Substance: HYDROCHLOROTHIAZIDE\LOSARTAN
     Indication: HYPERTENSION
     Dosage: 1 DF, 1X/DAY (LOSARTAN 100 MG/HYDROCHLOROTHIAZIDE: 12.5 MG)
     Route: 048
  10. NIZORAL [Concomitant]
     Active Substance: KETOCONAZOLE
     Dosage: USE 1 APPLICATION TO AFFECTED AREA, ONCE A DAY
     Route: 061
  11. VITAMIN D2 [Concomitant]
     Active Substance: ERGOCALCIFEROL
     Dosage: 50000 IU UNIT CAPSULE, (TAKE 1 CAP BY MOUTH EVERY 7 DAYS)
     Route: 048
  12. RESTORIL [Concomitant]
     Active Substance: TEMAZEPAM
     Dosage: 30 MG, 1X/DAY (EVERY NIGHT AT BEDTIME)
     Route: 048
  13. VIAGRA [Suspect]
     Active Substance: SILDENAFIL CITRATE
     Dosage: 100 MG, AS NEEDED (1 TAB)
     Route: 048
     Dates: start: 2010
  14. PRILOSEC [Concomitant]
     Active Substance: OMEPRAZOLE MAGNESIUM
     Dosage: 20 MG, 1X/DAY (TAKE 1 CAP EVERY MORNING BEFORE BREAKFAST)
     Route: 048
  15. SYNTHROID [Concomitant]
     Active Substance: LEVOTHYROXINE SODIUM
     Dosage: 100 UG, 1X/DAY
     Route: 048
  16. NOVOLOG [Concomitant]
     Active Substance: INSULIN ASPART
     Dosage: 15 IU, 3X/DAY, AFTER MEALS
     Route: 058
  17. MIRALAX [Concomitant]
     Active Substance: POLYETHYLENE GLYCOL 3350
     Dosage: 17 G, 1X/DAY (TAKE 1 PACKET)
     Route: 048
  18. EXENATIDE [Concomitant]
     Active Substance: EXENATIDE
     Dosage: 2 MG, WEEKLY (INJECT 2 MG BENEATH THE SKIN EVERY 7 DAYS)
     Route: 058
  19. GLUCOPHAGE [Concomitant]
     Active Substance: METFORMIN HYDROCHLORIDE
     Dosage: 1000 MG, 2X/DAY
     Route: 048

REACTIONS (3)
  - Diabetes mellitus [Unknown]
  - Arthritis [Unknown]
  - Accident at work [Unknown]
